FAERS Safety Report 8070606-X (Version None)
Quarter: 2012Q1

REPORT INFORMATION
  Report Type: 
  Country: None (occurrence: None)
  Receive Date: 20120125
  Receipt Date: 20120119
  Transmission Date: 20120608
  Serious: Yes (Hospitalization)
  Sender: FDA-Public Use
  Company Number: PHHY2012NL005066

PATIENT
  Sex: Male

DRUGS (4)
  1. ZOMETA [Suspect]
     Dosage: 4 MG/5 ML, 1X PER 28 DAYS
     Route: 042
     Dates: start: 20111220
  2. ZOMETA [Suspect]
     Dosage: 4 MG/5 ML, 1X PER 28 DAYS
     Route: 042
     Dates: start: 20100908
  3. ZOMETA [Suspect]
     Dosage: 4 MG/5 ML, 1X PER 28 DAYS
     Route: 042
     Dates: start: 20120119
  4. ZOMETA [Suspect]
     Indication: PROSTATE CANCER METASTATIC
     Dosage: 4 MG/5 ML, 1X PER 28 DAYS
     Route: 042

REACTIONS (3)
  - NEOPLASM MALIGNANT [None]
  - NEOPLASM PROGRESSION [None]
  - SPINAL CORD DISORDER [None]
